FAERS Safety Report 17249544 (Version 2)
Quarter: 2020Q1

REPORT INFORMATION
  Report Type: Spontaneous
  Country: FR (occurrence: FR)
  Receive Date: 20200108
  Receipt Date: 20200117
  Transmission Date: 20200409
  Serious: Yes (Other)
  Sender: FDA-Public Use
  Company Number: FR-009507513-2001FRA001582

PATIENT
  Age: 19 Year
  Sex: Female

DRUGS (3)
  1. METRONIDAZOLE BRAUN [Suspect]
     Active Substance: METRONIDAZOLE
     Indication: INFECTION
     Dosage: 1500 MILLIGRAM, QD, FORMULATION: UNKNOWN
     Route: 048
     Dates: start: 20191213, end: 20191214
  2. AMOXICILLIN SODIUM [Suspect]
     Active Substance: AMOXICILLIN SODIUM
     Indication: INFECTION
     Dosage: 3 GRAM, QD, FORMULATION: UNKNOWN
     Route: 048
     Dates: start: 20191211, end: 20191219
  3. FIDAXOMICIN [Suspect]
     Active Substance: FIDAXOMICIN
     Indication: INFECTION
     Dosage: 400 MILLIGRAM, QD
     Route: 048
     Dates: start: 20191214, end: 20191216

REACTIONS (2)
  - Product use in unapproved indication [Unknown]
  - Hepatocellular injury [Recovering/Resolving]

NARRATIVE: CASE EVENT DATE: 20191214
